FAERS Safety Report 12237943 (Version 1)
Quarter: 2016Q2

REPORT INFORMATION
  Report Type: Report from Study
  Country: CA (occurrence: CA)
  Receive Date: 20160405
  Receipt Date: 20160405
  Transmission Date: 20160815
  Serious: Yes (Other)
  Sender: FDA-Public Use
  Company Number: CA-JNJFOC-20160329719

PATIENT
  Age: 15 Year
  Sex: Male
  Weight: 72 kg

DRUGS (2)
  1. REMICADE [Suspect]
     Active Substance: INFLIXIMAB
     Indication: CROHN^S DISEASE
     Route: 042
     Dates: start: 20160330
  2. REMICADE [Suspect]
     Active Substance: INFLIXIMAB
     Indication: CROHN^S DISEASE
     Route: 042
     Dates: start: 20090204

REACTIONS (6)
  - Product use issue [Unknown]
  - Off label use [Unknown]
  - Infusion related reaction [Recovered/Resolved]
  - Ankle fracture [Recovering/Resolving]
  - Generalised erythema [Recovered/Resolved]
  - Sports injury [Unknown]

NARRATIVE: CASE EVENT DATE: 20090204
